FAERS Safety Report 8577317 (Version 3)
Quarter: 2015Q1

REPORT INFORMATION
  Report Type: Spontaneous
  Country: US (occurrence: US)
  Receive Date: 20120524
  Receipt Date: 20150325
  Transmission Date: 20150721
  Serious: Yes (Other)
  Sender: FDA-Public Use
  Company Number: PHEH2012US010315

PATIENT
  Age: 57 Year
  Sex: Female
  Weight: 81.7 kg

DRUGS (2)
  1. GLEEVEC [Suspect]
     Active Substance: IMATINIB MESYLATE
     Dosage: 300 MG, DAILY
     Route: 048
     Dates: start: 20001227
  2. GLEEVEC [Suspect]
     Active Substance: IMATINIB MESYLATE
     Indication: CHRONIC MYELOID LEUKAEMIA
     Dosage: 400 MG, UNK
     Route: 048
     Dates: start: 200010, end: 20001227

REACTIONS (3)
  - Cytopenia [Unknown]
  - Breast cancer female [Unknown]
  - Second primary malignancy [Unknown]

NARRATIVE: CASE EVENT DATE: 20120215
